FAERS Safety Report 13029088 (Version 2)
Quarter: 2017Q1

REPORT INFORMATION
  Report Type: Spontaneous
  Country: US (occurrence: US)
  Receive Date: 20161215
  Receipt Date: 20170111
  Transmission Date: 20170428
  Serious: No
  Sender: FDA-Public Use
  Company Number: US-TAIHO ONCOLOGY INC-EU-2016-03166

PATIENT
  Age: 64 Year
  Sex: Female

DRUGS (23)
  1. ATENOLOL. [Concomitant]
     Active Substance: ATENOLOL
  2. MELATONIN [Concomitant]
     Active Substance: MELATONIN
  3. ABILIFY [Concomitant]
     Active Substance: ARIPIPRAZOLE
  4. ALPRAZOLAM. [Concomitant]
     Active Substance: ALPRAZOLAM
  5. FERROUS SULFATE. [Concomitant]
     Active Substance: FERROUS SULFATE
     Dosage: NI
  6. SEROQUEL [Concomitant]
     Active Substance: QUETIAPINE FUMARATE
  7. OMEPRAZOLE. [Concomitant]
     Active Substance: OMEPRAZOLE
  8. LEXAPRO [Concomitant]
     Active Substance: ESCITALOPRAM OXALATE
  9. ASCORBIC ACID. [Concomitant]
     Active Substance: ASCORBIC ACID
  10. BENADRYL [Concomitant]
     Active Substance: DIPHENHYDRAMINE HYDROCHLORIDE
  11. COLESTYRAMINE [Concomitant]
     Active Substance: CHOLESTYRAMINE
  12. SYNTHROID [Concomitant]
     Active Substance: LEVOTHYROXINE SODIUM
  13. ESTRADIOL. [Concomitant]
     Active Substance: ESTRADIOL
  14. FISH OIL [Concomitant]
     Active Substance: FISH OIL
  15. CIPROFLOXACIN. [Concomitant]
     Active Substance: CIPROFLOXACIN
     Dosage: NI
  16. SIMVASTATIN. [Concomitant]
     Active Substance: SIMVASTATIN
  17. HYDROCHLOROTHIAZIDE/TRIAMTERENE [Concomitant]
  18. TRILEPTAL [Concomitant]
     Active Substance: OXCARBAZEPINE
  19. AMOXICILLIN. [Concomitant]
     Active Substance: AMOXICILLIN
  20. LONSURF [Suspect]
     Active Substance: TIPIRACIL HYDROCHLORIDE\TRIFLURIDINE
     Indication: RECTOSIGMOID CANCER
     Route: 048
     Dates: start: 20160225, end: 201612
  21. POTASSIUM [Concomitant]
     Active Substance: POTASSIUM
     Dosage: NI
  22. LUNESTA [Concomitant]
     Active Substance: ESZOPICLONE
  23. LEVOTHYROXINE. [Concomitant]
     Active Substance: LEVOTHYROXINE

REACTIONS (2)
  - Disease progression [Unknown]
  - Platelet count decreased [Unknown]

NARRATIVE: CASE EVENT DATE: 201611
